FAERS Safety Report 9682471 (Version 2)
Quarter: 2013Q4

REPORT INFORMATION
  Report Type: Spontaneous
  Country: AU (occurrence: AU)
  Receive Date: 20131112
  Receipt Date: 20131120
  Transmission Date: 20140711
  Serious: Yes (Disabling)
  Sender: FDA-Public Use
  Company Number: AU-ROCHE-1298852

PATIENT
  Age: 31 Year
  Sex: Male

DRUGS (1)
  1. PEG-INTERFERON ALFA 2A [Suspect]
     Indication: HEPATITIS C
     Route: 065
     Dates: start: 2009, end: 2010

REACTIONS (8)
  - Visual impairment [Unknown]
  - General physical health deterioration [Unknown]
  - Blood pressure fluctuation [Unknown]
  - Skin disorder [Unknown]
  - Dyspnoea [Unknown]
  - Nervous system disorder [Unknown]
  - Palpitations [Unknown]
  - Photosensitivity reaction [Unknown]
